FAERS Safety Report 18108055 (Version 1)
Quarter: 2020Q3

REPORT INFORMATION
  Report Type: Spontaneous
  Country: US (occurrence: US)
  Receive Date: 20200803
  Receipt Date: 20200803
  Transmission Date: 20201103
  Serious: Yes (Death, Other)
  Sender: FDA-Public Use
  Company Number: US-PURDUE-USA-2020-0160338

PATIENT
  Sex: Male

DRUGS (1)
  1. OXYCONTIN [Suspect]
     Active Substance: OXYCODONE HYDROCHLORIDE
     Indication: LIMB AMPUTATION
     Dosage: UNK
     Route: 048
     Dates: start: 2005

REACTIONS (3)
  - Suicide attempt [Unknown]
  - Drug dependence [Unknown]
  - Intentional overdose [Fatal]
